FAERS Safety Report 17875325 (Version 1)
Quarter: 2020Q2

REPORT INFORMATION
  Report Type: Spontaneous
  Country: US (occurrence: US)
  Receive Date: 20200608
  Receipt Date: 20200608
  Transmission Date: 20200714
  Serious: No
  Sender: FDA-Public Use
  Company Number: None

PATIENT

DRUGS (1)
  1. ZANTAC [Suspect]
     Active Substance: RANITIDINE HYDROCHLORIDE

REACTIONS (7)
  - Hepatic cirrhosis [None]
  - Hepatic cancer [None]
  - Prostate cancer [None]
  - Pain [None]
  - Hepatic failure [None]
  - Pancreatitis [None]
  - Bladder cancer [None]
